FAERS Safety Report 7678493-6 (Version None)
Quarter: 2011Q3

REPORT INFORMATION
  Report Type: 
  Country: None (occurrence: None)
  Receive Date: 20110811
  Receipt Date: 20110808
  Transmission Date: 20111222
  Serious: Yes (Other)
  Sender: FDA-Public Use
  Company Number: CO-PFIZER INC-2011175971

PATIENT
  Age: 77 Year
  Sex: Male

DRUGS (6)
  1. LYRICA [Suspect]
     Dosage: UNK MG, 2X/DAY
  2. SITAGLIPTIN AND METFORMIN HYDROCHLORIDE [Concomitant]
     Dosage: UNK
  3. CANDESARTAN [Concomitant]
     Dosage: UNK
  4. INSULIN GLARGINE [Concomitant]
     Dosage: UNK
  5. GLIBENCLAMIDE [Concomitant]
     Dosage: UNK
  6. LYRICA [Suspect]
     Indication: DIABETIC NEUROPATHY
     Dosage: 75 MG, 2X/DAY, 75 MG IN THE MORNING AND 75 MG IN THE NIGHT
     Route: 048

REACTIONS (3)
  - DRUG ADMINISTRATION ERROR [None]
  - SOMNOLENCE [None]
  - ROAD TRAFFIC ACCIDENT [None]
